FAERS Safety Report 20213981 (Version 3)
Quarter: 2022Q1

REPORT INFORMATION
  Report Type: Spontaneous
  Country: CA (occurrence: CA)
  Receive Date: 20211221
  Receipt Date: 20220104
  Transmission Date: 20220423
  Serious: Yes (Hospitalization, Other)
  Sender: FDA-Public Use
  Company Number: CA-PFIZER INC-202101317826

PATIENT
  Age: 34 Year
  Sex: Female
  Weight: 89 kg

DRUGS (8)
  1. RUXIENCE [Suspect]
     Active Substance: RITUXIMAB-PVVR
     Indication: Glomerulonephritis membranous
     Dosage: 1 G, Q2 WEEKS X 2 DOSES
     Route: 042
  2. RUXIENCE [Suspect]
     Active Substance: RITUXIMAB-PVVR
     Indication: Nephrotic syndrome
     Dosage: 1 G, Q2 WEEKS X 2 DOSES
     Route: 042
     Dates: start: 20211208, end: 20211208
  3. CANDESARTAN [Concomitant]
     Active Substance: CANDESARTAN
     Dosage: 5 MG
     Route: 048
  4. DIPHENHYDRAMINE [Concomitant]
     Active Substance: DIPHENHYDRAMINE
     Indication: Premedication
     Dosage: 50 MG
     Dates: start: 20211208, end: 20211208
  5. LASIX [Concomitant]
     Active Substance: FUROSEMIDE
     Dosage: 80 MG
     Route: 048
  6. PREDNISONE [Concomitant]
     Active Substance: PREDNISONE
     Dosage: 90 MG
     Route: 048
  7. RIFAMPIN [Concomitant]
     Active Substance: RIFAMPIN
     Dosage: 500 MG
     Route: 048
  8. SOLU-MEDROL [Concomitant]
     Active Substance: METHYLPREDNISOLONE SODIUM SUCCINATE
     Indication: Premedication
     Dosage: 100 MG PIV
     Dates: start: 20211208, end: 20211208

REACTIONS (11)
  - Blood pressure increased [Unknown]
  - Headache [Unknown]
  - Hunger [Unknown]
  - Nasal congestion [Unknown]
  - Ear discomfort [Unknown]
  - Mouth swelling [Unknown]
  - Throat tightness [Not Recovered/Not Resolved]
  - Throat irritation [Not Recovered/Not Resolved]
  - Heart rate increased [Unknown]
  - Off label use [Unknown]
  - Rhinorrhoea [Unknown]

NARRATIVE: CASE EVENT DATE: 20211208
